FAERS Safety Report 8450231-9 (Version None)
Quarter: 2012Q2

REPORT INFORMATION
  Report Type: 
  Country: None (occurrence: None)
  Receive Date: 20120620
  Receipt Date: 20120612
  Transmission Date: 20120825
  Serious: Yes (Hospitalization, Other)
  Sender: FDA-Public Use
  Company Number: US-BAYER-2012-059701

PATIENT
  Age: 42 Year
  Sex: Female
  Weight: 82 kg

DRUGS (4)
  1. ASPIRIN [Concomitant]
     Indication: PAIN
  2. YASMIN [Suspect]
  3. DROSPIRENONE AND ETHINYL ESTRADIOL [Suspect]
  4. ROLAIDS [Concomitant]
     Indication: CHEST PAIN

REACTIONS (2)
  - PULMONARY EMBOLISM [None]
  - THROMBOSIS [None]
